FAERS Safety Report 5968718-7 (Version None)
Quarter: 2008Q4

REPORT INFORMATION
  Report Type: 
  Country: None (occurrence: None)
  Receive Date: 20081126
  Receipt Date: 20081125
  Transmission Date: 20090506
  Serious: Yes (Other)
  Sender: FDA-Public Use
  Company Number: A0758321A

PATIENT
  Age: 52 Year
  Sex: Male

DRUGS (1)
  1. PAXIL [Suspect]
     Indication: DEPRESSION
     Route: 065

REACTIONS (2)
  - HOMICIDAL IDEATION [None]
  - PSYCHOTIC DISORDER [None]
